FAERS Safety Report 26069926 (Version 1)
Quarter: 2025Q4

REPORT INFORMATION
  Report Type: Spontaneous
  Country: US (occurrence: US)
  Receive Date: 20251120
  Receipt Date: 20251120
  Transmission Date: 20260117
  Serious: No
  Sender: CATALYST PHARMA
  Company Number: US-CATALYST PHARMACEUTICALS-US-CATA-25-01485

PATIENT
  Age: 4 Year
  Sex: Male
  Weight: 18.141 kg

DRUGS (7)
  1. AGAMREE [Suspect]
     Active Substance: VAMOROLONE
     Indication: Duchenne muscular dystrophy
     Dosage: 2.5 ML ONCE DAILY
     Route: 048
     Dates: start: 20250222
  2. FAMOTIDINE [Concomitant]
     Active Substance: FAMOTIDINE
     Indication: Gastrointestinal disorder
     Dosage: TWICE A DAY
     Route: 065
  3. FAMOTIDINE [Concomitant]
     Active Substance: FAMOTIDINE
     Indication: Prophylaxis
  4. VYONDYS [Concomitant]
     Indication: Duchenne muscular dystrophy
     Dosage: WEEKLY
     Route: 065
  5. IRON [Concomitant]
     Active Substance: IRON
     Indication: Hypovitaminosis
     Dosage: 5 ML ONCE A DAY
     Route: 048
  6. IRON [Concomitant]
     Active Substance: IRON
     Indication: Supplementation therapy
  7. CHILDRENS TYLENOL [Concomitant]
     Active Substance: ACETAMINOPHEN
     Indication: Pyrexia
     Dosage: AS NEEDED
     Route: 048

REACTIONS (1)
  - Hypersensitivity [Recovering/Resolving]

NARRATIVE: CASE EVENT DATE: 20250816
